FAERS Safety Report 4947088-7 (Version None)
Quarter: 2006Q1

REPORT INFORMATION
  Report Type: 
  Country: None (occurrence: None)
  Receive Date: 20060314
  Receipt Date: 20060227
  Transmission Date: 20060701
  Serious: Yes (Hospitalization)
  Sender: FDA-Public Use
  Company Number: 200602IM000176

PATIENT
  Age: 56 Year
  Sex: Female
  Weight: 75.7507 kg

DRUGS (11)
  1. ACTIMMUNE [Suspect]
     Indication: LUNG DISORDER
     Dosage: SUBCUTANEOUS
     Route: 058
  2. PROZAC [Concomitant]
  3. SEROFQUEL [Concomitant]
  4. XANAX [Concomitant]
  5. HYDROXYZINE [Concomitant]
  6. MORPHINE [Concomitant]
  7. PERCOCET [Concomitant]
  8. ATIVAN [Concomitant]
  9. VITAMINS [Concomitant]
  10. SKELAXIN [Concomitant]
  11. TRI-SLAN [Concomitant]

REACTIONS (4)
  - CONDITION AGGRAVATED [None]
  - DRUG DOSE OMISSION [None]
  - LUNG DISORDER [None]
  - PHARMACEUTICAL PRODUCT COMPLAINT [None]
